FAERS Safety Report 11944513 (Version 4)
Quarter: 2016Q2

REPORT INFORMATION
  Report Type: Spontaneous
  Country: US (occurrence: US)
  Receive Date: 20160125
  Receipt Date: 20160506
  Transmission Date: 20160815
  Serious: Yes (Hospitalization, Disabling, Other)
  Sender: FDA-Public Use
  Company Number: US-009507513-1601USA007608

PATIENT
  Age: 75 Year
  Sex: Female
  Weight: 78.46 kg

DRUGS (6)
  1. SIMVASTATIN TABLETS, USP [Concomitant]
     Active Substance: SIMVASTATIN
  2. JANUVIA [Suspect]
     Active Substance: SITAGLIPTIN PHOSPHATE
     Indication: TYPE 2 DIABETES MELLITUS
     Dosage: 100 MG, QD
     Route: 048
     Dates: start: 20111002, end: 20141020
  3. ATENOLOL. [Concomitant]
     Active Substance: ATENOLOL
  4. LEVOTHYROXINE SODIUM. [Concomitant]
     Active Substance: LEVOTHYROXINE SODIUM
  5. METFORMIN [Concomitant]
     Active Substance: METFORMIN HYDROCHLORIDE
  6. OCUVITE [Concomitant]
     Active Substance: VITAMINS

REACTIONS (3)
  - Nausea [Not Recovered/Not Resolved]
  - Pancreatitis [Not Recovered/Not Resolved]
  - Drug hypersensitivity [Unknown]

NARRATIVE: CASE EVENT DATE: 20140401
